FAERS Safety Report 4835058-9 (Version None)
Quarter: 2005Q4

REPORT INFORMATION
  Report Type: 
  Country: None (occurrence: None)
  Receive Date: 20051122
  Receipt Date: 20040614
  Transmission Date: 20060501
  Serious: Yes (Life-Threatening)
  Sender: FDA-Public Use
  Company Number: FR-ABBOTT-04P-056-0263963-00

PATIENT
  Age: 2 Year
  Sex: Male

DRUGS (6)
  1. SEVORANE LIQUID FOR INHALATION [Suspect]
     Indication: ANAESTHESIA
     Route: 055
     Dates: start: 20040521, end: 20040521
  2. SEVORANE LIQUID FOR INHALATION [Suspect]
     Dates: start: 20040521, end: 20040521
  3. SUFENTANIL CITRATE [Suspect]
     Indication: ANAESTHESIA
     Dates: start: 20050521, end: 20050521
  4. BUPIVACAINE [Suspect]
     Indication: ANAESTHESIA
     Dosage: NOT REPORTED
     Dates: start: 20040521, end: 20040521
  5. LIDOCAINE [Suspect]
     Indication: ANAESTHESIA
     Dosage: NOT REPORTED
     Dates: start: 20040521, end: 20040521
  6. LIDOCAINE [Concomitant]
     Indication: ANAESTHESIA
     Route: 058
     Dates: start: 20040521, end: 20040521

REACTIONS (11)
  - AUTONOMIC NERVOUS SYSTEM IMBALANCE [None]
  - CARDIAC ARREST [None]
  - COMA [None]
  - CYTOLYTIC HEPATITIS [None]
  - ERYTHEMA [None]
  - HYPERTHERMIA [None]
  - HYPERTONIA [None]
  - HYPOGLYCAEMIA [None]
  - HYPONATRAEMIA [None]
  - HYPOTONIA [None]
  - MUSCLE CONTRACTURE [None]
